FAERS Safety Report 9723324 (Version 1)
Quarter: 2013Q4

REPORT INFORMATION
  Report Type: Spontaneous
  Country: US (occurrence: US)
  Receive Date: 20131202
  Receipt Date: 20131202
  Transmission Date: 20140711
  Serious: No
  Sender: FDA-Public Use
  Company Number: US-GLAXOSMITHKLINE-A1003061A

PATIENT
  Age: 48 Year
  Sex: Female

DRUGS (4)
  1. FLUTICASONE PROPIONATE [Suspect]
     Indication: RHINITIS ALLERGIC
     Dosage: 2SPR PER DAY
     Route: 045
     Dates: start: 20121114, end: 20121126
  2. ASTEPRO [Concomitant]
  3. UNKNOWN MEDICATION [Concomitant]
     Indication: ILL-DEFINED DISORDER
  4. MAXAIR [Concomitant]

REACTIONS (3)
  - Headache [Not Recovered/Not Resolved]
  - Nasal dryness [Unknown]
  - Drug ineffective [Unknown]
